FAERS Safety Report 9904909 (Version 1)
Quarter: 2014Q1

REPORT INFORMATION
  Report Type: Spontaneous
  Country: BR (occurrence: BR)
  Receive Date: 20140218
  Receipt Date: 20140218
  Transmission Date: 20141002
  Serious: Yes (Hospitalization)
  Sender: FDA-Public Use
  Company Number: BR-BAYER-2014-019068

PATIENT
  Age: 1 Month
  Sex: Female

DRUGS (1)
  1. QLAIRA [Suspect]
     Route: 064

REACTIONS (1)
  - Neonatal aspiration [None]
